FAERS Safety Report 15444265 (Version 4)
Quarter: 2018Q4

REPORT INFORMATION
  Report Type: Spontaneous
  Country: US (occurrence: US)
  Receive Date: 20180928
  Receipt Date: 20181102
  Transmission Date: 20190204
  Serious: Yes (Hospitalization, Other)
  Sender: FDA-Public Use
  Company Number: US-PFIZER INC-2018386615

PATIENT
  Age: 68 Year
  Sex: Female
  Weight: 88.9 kg

DRUGS (2)
  1. XALKORI [Suspect]
     Active Substance: CRIZOTINIB
     Indication: LUNG NEOPLASM MALIGNANT
     Dosage: 250 MG, 2X/DAY
     Route: 048
     Dates: start: 201412
  2. IBUPROFEN. [Concomitant]
     Active Substance: IBUPROFEN
     Indication: PERI-SPINAL HETEROTOPIC OSSIFICATION
     Dosage: UNK
     Dates: start: 201809

REACTIONS (7)
  - Injury [Not Recovered/Not Resolved]
  - Femur fracture [Not Recovered/Not Resolved]
  - Exostosis [Not Recovered/Not Resolved]
  - Pain [Not Recovered/Not Resolved]
  - Hand fracture [Unknown]
  - Extraskeletal ossification [Not Recovered/Not Resolved]
  - Fall [Not Recovered/Not Resolved]

NARRATIVE: CASE EVENT DATE: 201803
